FAERS Safety Report 5601678-7 (Version None)
Quarter: 2008Q1

REPORT INFORMATION
  Report Type: 
  Country: None (occurrence: None)
  Receive Date: 20080124
  Receipt Date: 20080117
  Transmission Date: 20080703
  Serious: Yes (Hospitalization, Other)
  Sender: FDA-Public Use
  Company Number: FR-WYE-G00470007

PATIENT
  Sex: Female
  Weight: 80 kg

DRUGS (9)
  1. ENBREL [Suspect]
     Indication: RHEUMATOID ARTHRITIS
     Route: 058
     Dates: start: 20070830, end: 20070920
  2. ARAVA [Suspect]
     Indication: RHEUMATOID ARTHRITIS
     Route: 048
     Dates: start: 20070201
  3. LOPERAMIDE HCL [Suspect]
     Indication: DIARRHOEA
     Dosage: UNKNOWN
     Route: 048
     Dates: start: 20070922, end: 20070922
  4. LOPERAMIDE HCL [Suspect]
     Dosage: UNKNOWN
     Route: 048
     Dates: start: 20070925, end: 20070925
  5. EUPANTOL [Suspect]
     Dosage: UNKNOWN
     Route: 048
     Dates: end: 20070927
  6. DAFALGAN [Suspect]
     Indication: RHEUMATOID ARTHRITIS
     Dosage: UNKNOWN
     Route: 048
     Dates: end: 20070927
  7. APRANAX [Suspect]
     Route: 048
  8. CORTANCYL [Suspect]
     Route: 048
     Dates: end: 20070901
  9. CORTANCYL [Suspect]
     Route: 048
     Dates: start: 20070901

REACTIONS (15)
  - CHEST PAIN [None]
  - CHOROIDITIS [None]
  - CROHN'S DISEASE [None]
  - CYTOLYTIC HEPATITIS [None]
  - ERYTHEMA NODOSUM [None]
  - GRANULOMA [None]
  - HEADACHE [None]
  - INTERMEDIATE UVEITIS [None]
  - IRIDOCYCLITIS [None]
  - MOUTH ULCERATION [None]
  - PYREXIA [None]
  - RASH PAPULAR [None]
  - TACHYCARDIA [None]
  - VESSEL PUNCTURE SITE REACTION [None]
  - VOMITING [None]
